FAERS Safety Report 23191210 (Version 4)
Quarter: 2024Q3

REPORT INFORMATION
  Report Type: Report from Study
  Country: NL (occurrence: NL)
  Receive Date: 20231116
  Receipt Date: 20240927
  Transmission Date: 20241016
  Serious: Yes (Hospitalization)
  Sender: ABBVIE
  Company Number: NL-ABBVIE-5495828

PATIENT
  Sex: Male

DRUGS (8)
  1. CARBIDOPA\LEVODOPA [Suspect]
     Active Substance: CARBIDOPA\LEVODOPA
     Indication: Parkinson^s disease
     Dosage: MD:10.5ML; CD:4.6ML/H; ED:3.0ML;?REMAINS AT 16 HOURS
     Route: 050
     Dates: start: 20240103, end: 20240215
  2. CARBIDOPA\LEVODOPA [Suspect]
     Active Substance: CARBIDOPA\LEVODOPA
     Dosage: MD: 10.5ML, CD: 4.8ML/H, ED: 3.00ML?REMAINS AT 16 HOURS
     Route: 050
     Dates: start: 20240822, end: 20240917
  3. CARBIDOPA\LEVODOPA [Suspect]
     Active Substance: CARBIDOPA\LEVODOPA
     Dosage: LAST ADMIN DATE: 2023?REMAINS AT 16 HOURS
     Route: 050
     Dates: start: 20230227
  4. CARBIDOPA\LEVODOPA [Suspect]
     Active Substance: CARBIDOPA\LEVODOPA
     Dosage: MD:10.5ML; CD:4.6ML/H; ED:3.0ML;?DURATION TEXT: REMAINS AT 16 HOURS
     Route: 050
     Dates: start: 20231113, end: 20240103
  5. CARBIDOPA\LEVODOPA [Suspect]
     Active Substance: CARBIDOPA\LEVODOPA
     Dosage: MD: 10.5ML, CD: 4.6ML/H, ED: 3.00ML/REMAINS AT 16 HOURS
     Route: 050
     Dates: start: 20240423, end: 20240822
  6. CARBIDOPA\LEVODOPA [Suspect]
     Active Substance: CARBIDOPA\LEVODOPA
     Dosage: MD:10.5ML; CD:4.6ML/H; ED:3.0ML;/REMAINS AT 16 HOURS
     Route: 050
     Dates: start: 20240215, end: 20240423
  7. CARBIDOPA\LEVODOPA [Suspect]
     Active Substance: CARBIDOPA\LEVODOPA
     Dosage: MD: 10.5ML, CD: 4.8ML/H, ED: 3.00ML?REMAINS AT 16 HOURS
     Route: 050
     Dates: start: 20240917
  8. CARBIDOPA AND LEVODOPA [Concomitant]
     Active Substance: CARBIDOPA\LEVODOPA
     Indication: Product used for unknown indication
     Dosage: FORM STRENGTH: 125 MILLIGRAM

REACTIONS (17)
  - Fall [Not Recovered/Not Resolved]
  - Device placement issue [Not Recovered/Not Resolved]
  - Bradykinesia [Not Recovered/Not Resolved]
  - Speech disorder [Not Recovered/Not Resolved]
  - On and off phenomenon [Not Recovered/Not Resolved]
  - Gait disturbance [Not Recovered/Not Resolved]
  - Living in residential institution [Not Recovered/Not Resolved]
  - Freezing phenomenon [Not Recovered/Not Resolved]
  - Memory impairment [Not Recovered/Not Resolved]
  - Nocturia [Not Recovered/Not Resolved]
  - Poor quality sleep [Not Recovered/Not Resolved]
  - Feeding disorder [Not Recovered/Not Resolved]
  - Fatigue [Not Recovered/Not Resolved]
  - Stoma site reaction [Not Recovered/Not Resolved]
  - Loss of personal independence in daily activities [Unknown]
  - Condom catheter placement [Unknown]
  - General physical health deterioration [Unknown]

NARRATIVE: CASE EVENT DATE: 20230101
